FAERS Safety Report 15798074 (Version 2)
Quarter: 2019Q1

REPORT INFORMATION
  Report Type: Report from Study
  Country: GB (occurrence: GB)
  Receive Date: 20190108
  Receipt Date: 20190118
  Transmission Date: 20190417
  Serious: Yes (Disabling, Other)
  Sender: FDA-Public Use
  Company Number: GB-PFIZER INC-2019004797

PATIENT
  Sex: Male

DRUGS (6)
  1. CARBOPLATIN. [Suspect]
     Active Substance: CARBOPLATIN
     Indication: PANCREATIC NEUROENDOCRINE TUMOUR
     Dosage: UNK UNK, CYCLIC (SIX CYCLES)
     Route: 065
  2. FLUOROURACIL. [Suspect]
     Active Substance: FLUOROURACIL
     Indication: PANCREATIC NEUROENDOCRINE TUMOUR
     Dosage: UNK, CYCLIC (SIX CYCLES)
     Route: 065
  3. ARGININE [Concomitant]
     Active Substance: ARGININE
     Dosage: 25 G, UNK (INFUSION IN SALINE, ADMINISTERED OVER 4-6 H)
     Route: 042
  4. LYSINE [Concomitant]
     Active Substance: LYSINE
     Indication: RENAL DISORDER
     Dosage: 25 G, UNK (INFUSION IN SALINE, ADMINISTERED OVER 4-6 H)
     Route: 042
  5. 90Y-DOTATATE [Suspect]
     Active Substance: YTTRIUM OXODOTREOTIDE Y-90
     Indication: PANCREATIC NEUROENDOCRINE TUMOUR
     Dosage: 3.3 GBQ, CYCLIC ( 3 CYCLES WITH A CUMULATIVE ACTIVITY 3.3 GBQ)
     Route: 065
  6. STREPTOZOCIN [Suspect]
     Active Substance: STREPTOZOCIN
     Indication: PANCREATIC NEUROENDOCRINE TUMOUR
     Dosage: UNK UNK, CYCLIC  (SIX CYCLES)
     Route: 065

REACTIONS (2)
  - Renal failure [Unknown]
  - Renal impairment [Unknown]
